FAERS Safety Report 23776473 (Version 1)
Quarter: 2024Q2

REPORT INFORMATION
  Report Type: Spontaneous
  Country: FR (occurrence: FR)
  Receive Date: 20240424
  Receipt Date: 20240424
  Transmission Date: 20240716
  Serious: Yes (Hospitalization)
  Sender: FDA-Public Use
  Company Number: None

PATIENT
  Age: 3 Year
  Sex: Female
  Weight: 20 kg

DRUGS (1)
  1. DESLORATADINE [Suspect]
     Active Substance: DESLORATADINE
     Indication: Intentional product misuse to child
     Dosage: 13 TABLETS POTENTIALLY INGESTED
     Route: 048
     Dates: start: 20240210, end: 20240210

REACTIONS (5)
  - Medication error [Recovered/Resolved]
  - Abdominal pain [Recovered/Resolved]
  - Vomiting [Recovered/Resolved]
  - Agitation [Recovered/Resolved]
  - Tachycardia [Recovered/Resolved]

NARRATIVE: CASE EVENT DATE: 20240211
